FAERS Safety Report 4664548-7 (Version None)
Quarter: 2005Q2

REPORT INFORMATION
  Report Type: 
  Country: None (occurrence: None)
  Receive Date: 20050518
  Receipt Date: 20041119
  Transmission Date: 20051028
  Serious: Yes (Other)
  Sender: FDA-Public Use
  Company Number: US-GLAXOSMITHKLINE-A0534661A

PATIENT
  Age: 30 Year
  Sex: Female

DRUGS (5)
  1. LAMICTAL [Suspect]
     Indication: EPILEPSY
     Route: 048
     Dates: start: 20041101
  2. TEGRETOL [Concomitant]
     Route: 065
     Dates: start: 20041201, end: 20041201
  3. VITAMINS [Concomitant]
  4. FLONASE [Concomitant]
  5. PROZAC [Concomitant]
     Dates: end: 20041101

REACTIONS (22)
  - ANXIETY [None]
  - CONVULSION [None]
  - DIZZINESS [None]
  - DRUG HYPERSENSITIVITY [None]
  - DRUG INEFFECTIVE [None]
  - DRUG INTERACTION [None]
  - EYE PAIN [None]
  - HEADACHE [None]
  - HORMONE LEVEL ABNORMAL [None]
  - HOT FLUSH [None]
  - INFERTILITY FEMALE [None]
  - INFLUENZA [None]
  - INSOMNIA [None]
  - MENSTRUATION IRREGULAR [None]
  - MIGRAINE WITH AURA [None]
  - NASOPHARYNGITIS [None]
  - POLLAKIURIA [None]
  - SINUSITIS [None]
  - SOMNOLENCE [None]
  - TACHYCARDIA [None]
  - TIC [None]
  - TREMOR [None]
